FAERS Safety Report 10152245 (Version 1)
Quarter: 2014Q2

REPORT INFORMATION
  Report Type: Spontaneous
  Country: CH (occurrence: CH)
  Receive Date: 20140505
  Receipt Date: 20140505
  Transmission Date: 20141212
  Serious: Yes (Death, Other)
  Sender: FDA-Public Use
  Company Number: PHHY2014CH053109

PATIENT
  Age: 27 Year
  Sex: Male

DRUGS (1)
  1. RITALIN [Suspect]
     Indication: PSYCHOMOTOR HYPERACTIVITY
     Dosage: UNK UKN, UNK

REACTIONS (4)
  - Completed suicide [Fatal]
  - Suicidal ideation [Unknown]
  - Suicide attempt [Unknown]
  - Abdominal pain upper [Unknown]
